FAERS Safety Report 6495894-2 (Version None)
Quarter: 2009Q4

REPORT INFORMATION
  Report Type: 
  Country: None (occurrence: None)
  Receive Date: 20091214
  Receipt Date: 20090826
  Transmission Date: 20100525
  Serious: No
  Sender: FDA-Public Use
  Company Number: US-BRISTOL-MYERS SQUIBB COMPANY-14755060

PATIENT
  Age: 67 Year
  Sex: Female
  Weight: 63 kg

DRUGS (3)
  1. ABILIFY [Suspect]
     Indication: DEPRESSION
     Dosage: STARTED 5MG ABOUT 1 YEAR AGO. STOPPED 1 YR OR 6 WEEKS AGO AND RESTARTED ON 08/21/2009
  2. PROZAC [Concomitant]
  3. KLONOPIN [Concomitant]

REACTIONS (1)
  - WEIGHT INCREASED [None]
